FAERS Safety Report 9820564 (Version 2)
Quarter: 2014Q1

REPORT INFORMATION
  Report Type: Spontaneous
  Country: JP (occurrence: JP)
  Receive Date: 20140116
  Receipt Date: 20140116
  Transmission Date: 20141002
  Serious: Yes (Other)
  Sender: FDA-Public Use
  Company Number: JP-BAYER-2014-003948

PATIENT
  Age: 72 Year
  Sex: Male

DRUGS (2)
  1. BAYASPIRIN [Suspect]
     Indication: ANGINA PECTORIS
     Dosage: DAILY DOSE 100 MG
     Route: 048
     Dates: end: 201308
  2. TICLOPIDINE HYDROCHLORIDE [Interacting]
     Dosage: DAILY DOSE 200 MG
     Route: 048
     Dates: end: 2013

REACTIONS (3)
  - Colon cancer [None]
  - Haematochezia [None]
  - Labelled drug-drug interaction medication error [None]
